FAERS Safety Report 7888966-9 (Version None)
Quarter: 2011Q4

REPORT INFORMATION
  Report Type: 
  Country: None (occurrence: None)
  Receive Date: 20111103
  Receipt Date: 20111021
  Transmission Date: 20120403
  Serious: Yes (Hospitalization)
  Sender: FDA-Public Use
  Company Number: PHEH2011US07443

PATIENT
  Age: 54 Year
  Sex: Female

DRUGS (10)
  1. PROPRANOLOL [Concomitant]
     Indication: HYPERTENSION
  2. PREDNISONE [Concomitant]
     Indication: IGA NEPHROPATHY
  3. TACROLIMUS [Concomitant]
     Dosage: 3 MG, DAILY
     Dates: start: 20090715
  4. LISINOPRIL [Concomitant]
     Indication: HYPERTENSION
  5. AZATHIOPRINE [Concomitant]
     Indication: PROPHYLAXIS AGAINST TRANSPLANT REJECTION
  6. LISINOPRIL [Concomitant]
     Indication: GLOMERULONEPHRITIS
  7. MYCOPHENOLATE MOFETIL [Concomitant]
     Indication: PROPHYLAXIS AGAINST TRANSPLANT REJECTION
     Dosage: 1500 MG, DAILY
     Route: 048
     Dates: start: 19930518
  8. METOPROLOL TARTRATE [Concomitant]
     Indication: HYPERTENSION
  9. CYCLOSPORINE [Suspect]
     Indication: PROPHYLAXIS AGAINST TRANSPLANT REJECTION
  10. TACROLIMUS [Concomitant]
     Indication: PROPHYLAXIS AGAINST TRANSPLANT REJECTION
     Dosage: 3 MG DAILY
     Dates: start: 20000522

REACTIONS (1)
  - PULMONARY HYPERTENSION [None]
